FAERS Safety Report 5364683-4 (Version None)
Quarter: 2007Q2

REPORT INFORMATION
  Report Type: 
  Country: None (occurrence: None)
  Receive Date: 20070621
  Receipt Date: 20070611
  Transmission Date: 20071010
  Serious: Yes (Hospitalization)
  Sender: FDA-Public Use
  Company Number: PHBS2007FR09847

PATIENT
  Age: 53 Year
  Sex: Female

DRUGS (5)
  1. IMATINIB MESYLATE [Suspect]
     Indication: ACUTE MEGAKARYOCYTIC LEUKAEMIA
     Dosage: 800 MG/D
     Route: 065
  2. IMATINIB MESYLATE [Suspect]
     Dosage: 400 MG/D
     Route: 065
     Dates: start: 20050328, end: 20050405
  3. IDARUBICIN HCL [Suspect]
     Dosage: 12 MG/M2 PER DAY
     Route: 065
  4. CYTARABINE [Suspect]
     Dosage: 100 MG/M2 PER DAY
  5. DASATINIB [Concomitant]
     Dosage: 70 MG, BID
     Route: 065

REACTIONS (8)
  - CARDIOMEGALY [None]
  - CONVULSION [None]
  - FORCED EXPIRATORY VOLUME DECREASED [None]
  - GENERALISED OEDEMA [None]
  - LUNG DISORDER [None]
  - MALIGNANT NEOPLASM PROGRESSION [None]
  - SEPSIS [None]
  - TOXIC SHOCK SYNDROME [None]
